FAERS Safety Report 9518724 (Version 1)
Quarter: 2013Q3

REPORT INFORMATION
  Report Type: Report from Study
  Country: US (occurrence: US)
  Receive Date: 20130912
  Receipt Date: 20130912
  Transmission Date: 20140515
  Serious: Yes (Death)
  Sender: FDA-Public Use
  Company Number: US-ASTELLAS-2013US009517

PATIENT
  Age: 81 Year
  Sex: Male

DRUGS (18)
  1. ERLOTINIB TABLET [Suspect]
     Indication: NON-SMALL CELL LUNG CANCER
     Dosage: 100 MG, UID/QD
     Route: 048
  2. ATACAND [Concomitant]
     Indication: PRODUCT USED FOR UNKNOWN INDICATION
     Dosage: 32 MG, UID/QD
     Route: 048
  3. ATIVAN [Concomitant]
     Indication: NAUSEA
     Dosage: 1 DF, PRN (1 EVERY 4 HRS AS NEEDED)
     Route: 048
  4. COREG [Concomitant]
     Indication: PRODUCT USED FOR UNKNOWN INDICATION
     Dosage: 12.5 MG, BID
     Route: 048
  5. CRESTOR [Concomitant]
     Indication: PRODUCT USED FOR UNKNOWN INDICATION
     Dosage: 20 MG, UID/QD
     Route: 048
  6. FISH OIL [Concomitant]
     Indication: PRODUCT USED FOR UNKNOWN INDICATION
     Dosage: 1000 MG, UID/QD
     Route: 048
  7. GLYBURIDE [Concomitant]
     Indication: PRODUCT USED FOR UNKNOWN INDICATION
     Dosage: 1.2 MG, UID/QD, WITH FOOD AT BREAKFAST
     Route: 048
  8. LEVAQUIN [Concomitant]
     Indication: PRODUCT USED FOR UNKNOWN INDICATION
     Dosage: 500 MG, UID/QD
     Route: 048
  9. MEGACE [Concomitant]
     Indication: PRODUCT USED FOR UNKNOWN INDICATION
     Dosage: 20 ML, UID/QD (400MG/10ML)
     Route: 048
  10. OXYCODONE [Concomitant]
     Indication: PAIN
     Dosage: 5 MG, PRN (EVERY 3-4 HOURS AS NEEDED)
     Route: 048
  11. PLAVIX [Concomitant]
     Indication: PRODUCT USED FOR UNKNOWN INDICATION
     Dosage: 75 MG, UID/QD
     Route: 048
  12. TESSALON [Concomitant]
     Indication: COUGH
     Dosage: 100 MG, Q8 HOURS (EVERY 8 HOURS AS NEEDED)
     Route: 048
  13. VENTOLIN                           /00139502/ [Concomitant]
     Indication: PRODUCT USED FOR UNKNOWN INDICATION
     Dosage: UNK, IN TWO LUNGS EVERY 4 HOURS AS NEEDED
     Route: 065
  14. VICODIN [Concomitant]
     Indication: PAIN
     Dosage: 1 DF, PRN (1 TABLET EVERY 4-6 HOURS AS NEEDED)
     Route: 048
  15. VITAMIN C                          /00008001/ [Concomitant]
     Indication: PRODUCT USED FOR UNKNOWN INDICATION
     Dosage: 500 MG, UID/QD
     Route: 048
  16. VITAMIN E                          /00110501/ [Concomitant]
     Indication: PRODUCT USED FOR UNKNOWN INDICATION
     Dosage: 400 IU, UID/QD
     Route: 048
  17. ZOFRAN                             /00955301/ [Concomitant]
     Indication: PRODUCT USED FOR UNKNOWN INDICATION
     Dosage: 8 MG, TID, AS NEEDED
     Route: 048
  18. MILK THISTLE                       /01131701/ [Concomitant]
     Indication: PRODUCT USED FOR UNKNOWN INDICATION
     Dosage: 200 MG, UID/QD
     Route: 048

REACTIONS (2)
  - Incorrect dose administered [Unknown]
  - Death [Fatal]
